FAERS Safety Report 24291680 (Version 1)
Quarter: 2024Q3

REPORT INFORMATION
  Report Type: Spontaneous
  Country: US (occurrence: None)
  Receive Date: 20240906
  Receipt Date: 20240906
  Transmission Date: 20241017
  Serious: Yes (Other)
  Sender: Public
  Company Number: None

PATIENT
  Age: 76 Year
  Sex: Female

DRUGS (1)
  1. XDEMVY [Suspect]
     Active Substance: LOTILANER
     Indication: Demodex blepharitis
     Dosage: 1 DROP - GTT BID OPHTHALMIC
     Dates: start: 20240824, end: 20240830

REACTIONS (1)
  - Eyelid irritation [None]

NARRATIVE: CASE EVENT DATE: 20240830
